FAERS Safety Report 8258447-1 (Version None)
Quarter: 2012Q2

REPORT INFORMATION
  Report Type: 
  Country: None (occurrence: None)
  Receive Date: 20120403
  Receipt Date: 20120403
  Transmission Date: 20120825
  Serious: Yes (Other)
  Sender: FDA-Public Use
  Company Number: None

PATIENT
  Age: 52 Year
  Sex: Male

DRUGS (1)
  1. INECIVEK 375 MG VERTEX 750 MG TID PO [Suspect]
     Indication: HEPATITIS C
     Dosage: 750MG TID PO
     Route: 048
     Dates: start: 20120114

REACTIONS (2)
  - RASH PAPULAR [None]
  - RASH PRURITIC [None]
